FAERS Safety Report 25307860 (Version 2)
Quarter: 2025Q3

REPORT INFORMATION
  Report Type: Spontaneous
  Country: GB (occurrence: GB)
  Receive Date: 20250513
  Receipt Date: 20250725
  Transmission Date: 20251021
  Serious: Yes (Life-Threatening, Disabling, Other)
  Sender: VERITY PHARMACEUTICALS INC.
  Company Number: GB-VER-202500005

PATIENT
  Age: 39 Year
  Sex: Female
  Weight: 62 kg

DRUGS (2)
  1. TRIPTORELIN PAMOATE [Suspect]
     Active Substance: TRIPTORELIN PAMOATE
     Indication: Hormone replacement therapy
     Dosage: POWDER AND SOLVENT FOR SUSPENSION FOR INJECTION
     Route: 030
     Dates: start: 20241231
  2. ESTRADIOL [Concomitant]
     Active Substance: ESTRADIOL
     Indication: Hormone replacement therapy
     Route: 065
     Dates: start: 20240301

REACTIONS (28)
  - Arrhythmia [Unknown]
  - Autonomic nervous system imbalance [Recovered/Resolved]
  - Body temperature fluctuation [Recovered/Resolved]
  - Dyspnoea [Recovered/Resolved]
  - Cardiovascular disorder [Recovered/Resolved]
  - Chest pain [Recovered/Resolved]
  - Cold sweat [Unknown]
  - Aura [Unknown]
  - Dizziness [Recovered/Resolved]
  - Drug intolerance [Unknown]
  - Electric shock sensation [Unknown]
  - Fatigue [Unknown]
  - Fear of death [Recovered/Resolved]
  - Prothrombin time shortened [Unknown]
  - Photophobia [Recovered/Resolved]
  - Nausea [Unknown]
  - Neuralgia [Unknown]
  - Nervous system disorder [Recovered/Resolved]
  - Hypoaesthesia [Recovered/Resolved]
  - Palpitations [Recovered/Resolved]
  - Balance disorder [Recovered/Resolved]
  - Presyncope [Recovered/Resolved]
  - Atrial enlargement [Unknown]
  - Nervous system disorder [Unknown]
  - Thyroid pain [Recovered/Resolved]
  - Vertigo [Recovered/Resolved]
  - Visual impairment [Recovered/Resolved]
  - Asthenia [Not Recovered/Not Resolved]

NARRATIVE: CASE EVENT DATE: 20250108
